FAERS Safety Report 5265234-5 (Version None)
Quarter: 2007Q1

REPORT INFORMATION
  Report Type: 
  Country: None (occurrence: None)
  Receive Date: 20061213
  Receipt Date: 20040714
  Transmission Date: 20070707
  Serious: Yes (Other)
  Sender: FDA-Public Use
  Company Number: 2004UW11672

PATIENT
  Age: 66 Year
  Sex: Female
  Weight: 72.5755 kg

DRUGS (6)
  1. IRESSA [Suspect]
     Indication: NON-SMALL CELL LUNG CANCER
     Dosage: 250 MG PO
     Route: 048
  2. CELEBREX [Concomitant]
  3. NEURONTIN [Concomitant]
  4. AVANDIA [Concomitant]
  5. GLYBURIDE [Concomitant]
  6. ACTINAL [Concomitant]

REACTIONS (3)
  - DYSURIA [None]
  - GASTROOESOPHAGEAL REFLUX DISEASE [None]
  - MICTURITION URGENCY [None]
